FAERS Safety Report 5695392-X (Version None)
Quarter: 2008Q2

REPORT INFORMATION
  Report Type: 
  Country: None (occurrence: None)
  Receive Date: 20080402
  Receipt Date: 20080318
  Transmission Date: 20081010
  Serious: Yes (Other)
  Sender: FDA-Public Use
  Company Number: DK-DEXPHARM-20080221

PATIENT
  Age: 50 Year
  Sex: Female

DRUGS (1)
  1. OMEPRAZOLE [Suspect]

REACTIONS (1)
  - CUTANEOUS LUPUS ERYTHEMATOSUS [None]
